FAERS Safety Report 4611573-8 (Version None)
Quarter: 2005Q2

REPORT INFORMATION
  Report Type: 
  Country: None (occurrence: None)
  Receive Date: 20050311
  Receipt Date: 20050111
  Transmission Date: 20051028
  Serious: No
  Sender: FDA-Public Use
  Company Number: 2005-BP-00617BP

PATIENT
  Age: 67 Year
  Sex: Female

DRUGS (9)
  1. SPIRIVA [Suspect]
     Indication: ASTHMA
     Dosage: 18 MCG (18 MCG), IH
     Route: 055
     Dates: start: 20050106, end: 20050110
  2. SYNTHROID [Concomitant]
  3. NEXIUM [Concomitant]
  4. COZAAR [Concomitant]
  5. FUROSEMIDE [Concomitant]
  6. LEXAPRO [Concomitant]
  7. FLOVENT [Concomitant]
  8. ALBUTEROL [Concomitant]
  9. AVELOX (MOXILOXACIN HYDROCHLORIDE) [Concomitant]

REACTIONS (3)
  - EYE IRRITATION [None]
  - SENSATION OF FOREIGN BODY [None]
  - VISION BLURRED [None]
